FAERS Safety Report 19082378 (Version 1)
Quarter: 2021Q2

REPORT INFORMATION
  Report Type: Spontaneous
  Country: NL (occurrence: NL)
  Receive Date: 20210401
  Receipt Date: 20210401
  Transmission Date: 20210717
  Serious: Yes (Other)
  Sender: FDA-Public Use
  Company Number: NL-ROCHE-2793997

PATIENT
  Age: 51 Year
  Sex: Male
  Weight: 84 kg

DRUGS (3)
  1. OCRELIZUMAB. [Suspect]
     Active Substance: OCRELIZUMAB
     Indication: PRODUCT USED FOR UNKNOWN INDICATION
     Dosage: 2X PER JAAR
     Route: 065
     Dates: start: 20200108
  2. COVID?19 VACCINE NOS. [Suspect]
     Active Substance: COVID-19 VACCINE NOS
     Indication: COVID-19 IMMUNISATION
     Route: 065
     Dates: start: 20210312
  3. MIRABEGRON [Concomitant]
     Active Substance: MIRABEGRON
     Dosage: MODIFIED?RELEASE TABLET, 50 MG (MILLIGRAMS)

REACTIONS (5)
  - Asthenia [Recovered/Resolved]
  - Headache [Recovered/Resolved]
  - Fatigue [Recovered/Resolved]
  - Pyrexia [Recovered/Resolved]
  - Chills [Recovered/Resolved]

NARRATIVE: CASE EVENT DATE: 20210313
